FAERS Safety Report 5975422-8 (Version None)
Quarter: 2008Q4

REPORT INFORMATION
  Report Type: 
  Country: None (occurrence: None)
  Receive Date: 20081202
  Receipt Date: 20071212
  Transmission Date: 20090506
  Serious: Yes (Other)
  Sender: FDA-Public Use
  Company Number: US-AMGEN-QUU251802

PATIENT
  Sex: Male

DRUGS (5)
  1. ENBREL [Suspect]
     Indication: PSORIASIS
     Route: 058
     Dates: start: 20040803, end: 20071029
  2. ENBREL [Suspect]
     Indication: PSORIATIC ARTHROPATHY
  3. TOPROL-XL [Concomitant]
  4. FLECAINIDE ACETATE [Concomitant]
  5. ASPIRIN [Concomitant]

REACTIONS (2)
  - OESOPHAGEAL CARCINOMA [None]
  - TUBERCULIN TEST POSITIVE [None]
